FAERS Safety Report 5501250-3 (Version None)
Quarter: 2007Q4

REPORT INFORMATION
  Report Type: 
  Country: None (occurrence: None)
  Receive Date: 20071026
  Receipt Date: 20071020
  Transmission Date: 20080405
  Serious: Yes (Other)
  Sender: FDA-Public Use
  Company Number: CHPA2007US11050

PATIENT
  Age: 21 Year
  Sex: Male
  Weight: 59 kg

DRUGS (1)
  1. BENEFIBER FIBER SUPP VIT B + FOLIC ACIDE (WHEAT DEXTRIN) POWDER [Suspect]
     Indication: FAECES HARD
     Dosage: AS PER LABEL
     Dates: end: 20070901

REACTIONS (2)
  - DRUG INEFFECTIVE [None]
  - WEIGHT DECREASED [None]
